FAERS Safety Report 6193475-1 (Version None)
Quarter: 2009Q2

REPORT INFORMATION
  Report Type: 
  Country: None (occurrence: None)
  Receive Date: 20090518
  Receipt Date: 20090515
  Transmission Date: 20091009
  Serious: Yes (Other)
  Sender: FDA-Public Use
  Company Number: US-AMGEN-US344006

PATIENT
  Sex: Female
  Weight: 78.6 kg

DRUGS (4)
  1. NPLATE [Suspect]
     Indication: IDIOPATHIC THROMBOCYTOPENIC PURPURA
     Route: 058
     Dates: start: 20080924
  2. CORTICOSTEROIDS [Concomitant]
     Route: 065
     Dates: start: 20051229
  3. IMMUNOGLOBULINS [Concomitant]
     Route: 042
  4. CYCLOSPORINE [Concomitant]
     Route: 065
     Dates: start: 20070301

REACTIONS (1)
  - PERIPHERAL SENSORY NEUROPATHY [None]
